FAERS Safety Report 23221726 (Version 5)
Quarter: 2024Q1

REPORT INFORMATION
  Report Type: Spontaneous
  Country: US (occurrence: None)
  Receive Date: 20231123
  Receipt Date: 20240115
  Transmission Date: 20240410
  Serious: Yes (Life-Threatening, Other)
  Sender: FDA-Public Use
  Company Number: 2023A263610

PATIENT
  Age: 51 Year
  Sex: Female
  Weight: 35.8 kg

DRUGS (1)
  1. SAPHNELO [Suspect]
     Active Substance: ANIFROLUMAB-FNIA
     Indication: Systemic lupus erythematosus
     Dosage: 300.0MG ONCE/SINGLE ADMINISTRATION
     Route: 042
     Dates: start: 20231106, end: 20231106

REACTIONS (9)
  - Pharyngeal swelling [Recovered/Resolved]
  - Urticaria [Recovered/Resolved]
  - Dysphagia [Unknown]
  - Dyspnoea [Recovered/Resolved]
  - Dizziness [Unknown]
  - Communication disorder [Unknown]
  - Anaphylactic reaction [Recovered/Resolved]
  - Pruritus [Recovered/Resolved]
  - Confusional state [Recovered/Resolved]

NARRATIVE: CASE EVENT DATE: 20231106
